FAERS Safety Report 14246561 (Version 2)
Quarter: 2017Q4

REPORT INFORMATION
  Report Type: Report from Study
  Country: CO (occurrence: CO)
  Receive Date: 20171204
  Receipt Date: 20171207
  Transmission Date: 20180321
  Serious: Yes (Death, Hospitalization, Other)
  Sender: FDA-Public Use
  Company Number: PHHY2016CO151651

PATIENT
  Age: 60 Year
  Sex: Female
  Weight: 70 kg

DRUGS (6)
  1. DOLEX [Concomitant]
     Active Substance: IBUPROFEN
     Indication: PRODUCT USED FOR UNKNOWN INDICATION
     Route: 065
  2. ACETAMINOFEN [Concomitant]
     Active Substance: ACETAMINOPHEN
     Indication: PRODUCT USED FOR UNKNOWN INDICATION
     Route: 065
  3. GLIBENCLAMIDE [Concomitant]
     Active Substance: GLYBURIDE
     Indication: PRODUCT USED FOR UNKNOWN INDICATION
     Dosage: UNK
     Route: 065
  4. REVOLADE [Suspect]
     Active Substance: ELTROMBOPAG
     Indication: IMMUNE THROMBOCYTOPENIC PURPURA
     Dosage: 25 MG, BID
     Route: 048
     Dates: start: 20151001, end: 20171103
  5. RANITIDINE. [Concomitant]
     Active Substance: RANITIDINE
     Indication: PRODUCT USED FOR UNKNOWN INDICATION
     Route: 065
  6. CALCIPOTRIOL [Concomitant]
     Active Substance: CALCIPOTRIENE
     Indication: PRODUCT USED FOR UNKNOWN INDICATION
     Route: 065

REACTIONS (22)
  - Mydriasis [Unknown]
  - Abdominal pain [Unknown]
  - Muscle spasms [Unknown]
  - Blindness [Unknown]
  - Gastritis [Unknown]
  - Peripheral swelling [Unknown]
  - Decreased appetite [Unknown]
  - Choking [Unknown]
  - Diarrhoea [Unknown]
  - Pain in extremity [Unknown]
  - Vomiting [Unknown]
  - General physical health deterioration [Unknown]
  - Cardiac disorder [Unknown]
  - Eye disorder [Unknown]
  - Arthralgia [Unknown]
  - Fatigue [Unknown]
  - Asphyxia [Unknown]
  - Gastrointestinal injury [Unknown]
  - Abdominal pain upper [Unknown]
  - Cardio-respiratory arrest [Fatal]
  - Myocardial ischaemia [Unknown]
  - Malaise [Unknown]

NARRATIVE: CASE EVENT DATE: 20161031
